FAERS Safety Report 12956886 (Version 2)
Quarter: 2017Q1

REPORT INFORMATION
  Report Type: Report from Study
  Country: US (occurrence: US)
  Receive Date: 20161118
  Receipt Date: 20170201
  Transmission Date: 20170428
  Serious: Yes (Other)
  Sender: FDA-Public Use
  Company Number: US-OTSUKA-2016_026770

PATIENT
  Age: 64 Year
  Sex: Female
  Weight: 68 kg

DRUGS (14)
  1. BLINDED *PLACEBO [Suspect]
     Active Substance: INVESTIGATIONAL PRODUCT
     Dosage: 15 MG, QD (IN EVENING)
     Route: 048
     Dates: start: 20160614, end: 20160818
  2. BLINDED *PLACEBO [Suspect]
     Active Substance: INVESTIGATIONAL PRODUCT
     Dosage: PLACEBO, QD (IN EVENING)
     Route: 048
     Dates: start: 20160406, end: 20160412
  3. BLINDED *PLACEBO [Suspect]
     Active Substance: INVESTIGATIONAL PRODUCT
     Dosage: PLACEBO, QD (IN MORNING)
     Route: 048
     Dates: start: 20160406, end: 20160412
  4. BLINDED *PLACEBO [Suspect]
     Active Substance: INVESTIGATIONAL PRODUCT
     Indication: CONGENITAL CYSTIC KIDNEY DISEASE
     Dosage: 30 MG, QD (IN MORNING)
     Route: 048
     Dates: start: 20160614, end: 20160818
  5. BLINDED TOLVAPTAN [Suspect]
     Active Substance: TOLVAPTAN
     Dosage: 15 MG, QD (IN EVENING)
     Route: 048
     Dates: start: 20160614, end: 20160818
  6. BLINDED TOLVAPTAN [Suspect]
     Active Substance: TOLVAPTAN
     Dosage: PLACEBO, QD (IN MORNING)
     Route: 048
     Dates: start: 20160406, end: 20160412
  7. BLINDED TOLVAPTAN [Suspect]
     Active Substance: TOLVAPTAN
     Indication: CONGENITAL CYSTIC KIDNEY DISEASE
     Dosage: 30 MG, QD (IN MORNING)
     Route: 048
     Dates: start: 20160614, end: 20160818
  8. BLINDED TOLVAPTAN [Suspect]
     Active Substance: TOLVAPTAN
     Dosage: 15 MG, QD (IN MORNING)
     Route: 048
     Dates: start: 20160601, end: 20160613
  9. LISINOPRIL. [Concomitant]
     Active Substance: LISINOPRIL
     Indication: HYPERTENSION
     Dosage: 2.5 MG, QD
     Route: 048
     Dates: start: 20160810
  10. BLINDED TOLVAPTAN [Suspect]
     Active Substance: TOLVAPTAN
     Dosage: PLACEBO, QD (IN EVENING)
     Route: 048
     Dates: start: 20160406, end: 20160412
  11. BLINDED *PLACEBO [Suspect]
     Active Substance: INVESTIGATIONAL PRODUCT
     Dosage: 15 MG, QD (IN MORNING)
     Route: 048
     Dates: start: 20160601, end: 20160613
  12. BLINDED *PLACEBO [Suspect]
     Active Substance: INVESTIGATIONAL PRODUCT
     Dosage: 15 MG, QD (IN EVENING)
     Route: 048
     Dates: start: 20160601, end: 20160613
  13. BLINDED TOLVAPTAN [Suspect]
     Active Substance: TOLVAPTAN
     Dosage: 15 MG, QD (IN EVENING)
     Route: 048
     Dates: start: 20160601, end: 20160613
  14. FISH OIL [Concomitant]
     Active Substance: FISH OIL
     Indication: SUPPLEMENTATION THERAPY
     Dosage: 1000 MG, QD
     Route: 048
     Dates: start: 201508

REACTIONS (1)
  - Liver function test increased [Recovered/Resolved with Sequelae]

NARRATIVE: CASE EVENT DATE: 20160818
